FAERS Safety Report 7483613-2 (Version None)
Quarter: 2011Q2

REPORT INFORMATION
  Report Type: 
  Country: None (occurrence: None)
  Receive Date: 20110509
  Receipt Date: 20110426
  Transmission Date: 20111010
  Serious: Yes (Hospitalization)
  Sender: FDA-Public Use
  Company Number: 1000020533

PATIENT
  Age: 39 Year
  Sex: Female

DRUGS (7)
  1. VALDOXAN (AGOMELATIN) (TABLETS) (AGOMELATIN) [Concomitant]
  2. TERCIAN (CYAMEMAZINE)(TAB ETS)(CYAMEMAZINE) [Concomitant]
  3. ABILIFY [Suspect]
     Indication: SCHIZOPHRENIA
     Dosage: 5 MG (5 MG, 1 IN 1 D) ,ORAL
     Route: 048
     Dates: start: 20110131, end: 20110202
  4. NOCTRAN (NOCTRAN) (TABLETS) (NOCTRAN) [Concomitant]
  5. ESCITALOPRAM [Suspect]
     Dosage: 20 MG (20 MG,  1 IN 1 D),ORAL
     Route: 048
     Dates: end: 20110129
  6. IMOVANE (ZOPICLONE)(TABL.ETS)(ZOPICLONE) [Concomitant]
  7. XANAX (ALPRAZOLAM)(TABLETS)(ALPRAZOLAM) [Concomitant]

REACTIONS (7)
  - DRUG INTERACTION [None]
  - ABDOMINAL PAIN [None]
  - URINARY RETENTION [None]
  - SOCIAL AVOIDANT BEHAVIOUR [None]
  - DEPRESSION [None]
  - ANXIETY [None]
  - BLADDER DILATATION [None]
